FAERS Safety Report 12783649 (Version 2)
Quarter: 2017Q1

REPORT INFORMATION
  Report Type: Other
  Country: SI (occurrence: SI)
  Receive Date: 20160927
  Receipt Date: 20170106
  Transmission Date: 20170428
  Serious: Yes (Hospitalization, Other)
  Sender: FDA-Public Use
  Company Number: SI-VALIDUS PHARMACEUTICALS LLC-SI-2016VAL002724

PATIENT
  Age: 87 Year
  Sex: Female

DRUGS (1)
  1. LASIX [Suspect]
     Active Substance: FUROSEMIDE
     Indication: CARDIAC FAILURE
     Dosage: 1 DF, QD
     Route: 030
     Dates: start: 20160829, end: 20160829

REACTIONS (1)
  - Injection site haematoma [Unknown]

NARRATIVE: CASE EVENT DATE: 20160829
